FAERS Safety Report 4433634-9 (Version None)
Quarter: 2004Q3

REPORT INFORMATION
  Report Type: 
  Country: None (occurrence: None)
  Receive Date: 20040825
  Receipt Date: 20040825
  Transmission Date: 20050211
  Serious: Yes (Other)
  Sender: FDA-Public Use
  Company Number: None

PATIENT
  Sex: Female

DRUGS (4)
  1. CPT -11 [Suspect]
     Indication: GLIOBLASTOMA MULTIFORME
     Dosage: 350 MG /M2 EVERY 3 WKS
     Dates: start: 20040205
  2. CPT -11 [Suspect]
     Indication: GLIOBLASTOMA MULTIFORME
     Dosage: 350 MG /M2 EVERY 3 WKS
     Dates: start: 20040812
  3. THALIDOMIDE [Suspect]
     Indication: GLIOBLASTOMA MULTIFORME
     Dosage: 50 MG DAILY
     Dates: start: 20040205
  4. THALIDOMIDE [Suspect]
     Indication: GLIOBLASTOMA MULTIFORME
     Dosage: 50 MG DAILY
     Dates: start: 20040812

REACTIONS (5)
  - BACK PAIN [None]
  - BONE DENSITY DECREASED [None]
  - BONE PAIN [None]
  - MALIGNANT NEOPLASM PROGRESSION [None]
  - SPINAL COMPRESSION FRACTURE [None]
